FAERS Safety Report 12282446 (Version 1)
Quarter: 2016Q2

REPORT INFORMATION
  Report Type: Report from Study
  Country: US (occurrence: US)
  Receive Date: 20160419
  Receipt Date: 20160419
  Transmission Date: 20160815
  Serious: Yes (Death, Other)
  Sender: FDA-Public Use
  Company Number: US-PFIZER INC-2016109317

PATIENT
  Age: 17 Week
  Sex: Male

DRUGS (1)
  1. ARGATROBAN. [Suspect]
     Active Substance: ARGATROBAN
     Indication: THROMBOSIS PROPHYLAXIS
     Dosage: 0.7-1.0 MG/KG/MIN
     Route: 042

REACTIONS (3)
  - Cerebral infarction [Fatal]
  - Haemorrhage intracranial [Fatal]
  - Superior vena cava occlusion [Unknown]
